FAERS Safety Report 16644551 (Version 1)
Quarter: 2019Q3

REPORT INFORMATION
  Report Type: Spontaneous
  Country: PL (occurrence: PL)
  Receive Date: 20190729
  Receipt Date: 20190729
  Transmission Date: 20191004
  Serious: Yes (Hospitalization, Other)
  Sender: FDA-Public Use
  Company Number: PL-ELI_LILLY_AND_COMPANY-PL201907013790

PATIENT
  Age: 68 Year
  Sex: Female

DRUGS (3)
  1. INSULIN LISPRO [Suspect]
     Active Substance: INSULIN LISPRO
     Indication: LATENT AUTOIMMUNE DIABETES IN ADULTS
     Dosage: 14-16 UNITS FOR 10 MINUTES BEFORE THE MAIN MEALS
     Route: 065
  2. INSULIN LISPRO [Suspect]
     Active Substance: INSULIN LISPRO
     Dosage: 14-16 UNITS FOR 10 MINUTES BEFORE THE MAIN MEALS
  3. INSULIN GLARGINE [Suspect]
     Active Substance: INSULIN GLARGINE
     Indication: LATENT AUTOIMMUNE DIABETES IN ADULTS
     Dosage: 20 INTERNATIONAL UNIT, EACH EVENING
     Route: 065

REACTIONS (4)
  - Glycosylated haemoglobin increased [Unknown]
  - Wrong product administered [Unknown]
  - Loss of consciousness [Unknown]
  - Neuroglycopenia [Unknown]
